FAERS Safety Report 17517866 (Version 1)
Quarter: 2020Q1

REPORT INFORMATION
  Report Type: Spontaneous
  Country: US (occurrence: US)
  Receive Date: 20200309
  Receipt Date: 20200309
  Transmission Date: 20200409
  Serious: No
  Sender: FDA-Public Use
  Company Number: US-JNJFOC-20200307017

PATIENT
  Sex: Female
  Weight: 56.75 kg

DRUGS (1)
  1. CONCERTA [Suspect]
     Active Substance: METHYLPHENIDATE HYDROCHLORIDE
     Indication: ATTENTION DEFICIT/HYPERACTIVITY DISORDER
     Route: 048
     Dates: start: 2006

REACTIONS (7)
  - Product dose omission [Unknown]
  - Frustration tolerance decreased [Unknown]
  - Compulsions [Unknown]
  - Behaviour disorder [Unknown]
  - Impaired driving ability [Unknown]
  - Memory impairment [Unknown]
  - Nightmare [Unknown]
